FAERS Safety Report 6096265-3 (Version None)
Quarter: 2009Q1

REPORT INFORMATION
  Report Type: 
  Country: None (occurrence: None)
  Receive Date: 20090227
  Receipt Date: 20081029
  Transmission Date: 20090719
  Serious: No
  Sender: FDA-Public Use
  Company Number: A0753322A

PATIENT
  Sex: Female

DRUGS (3)
  1. LAMICTAL [Suspect]
     Indication: BIPOLAR DISORDER
     Dosage: 200MG PER DAY
     Route: 048
     Dates: start: 20080801, end: 20081019
  2. KLONOPIN [Concomitant]
  3. SEROQUEL [Concomitant]

REACTIONS (6)
  - ANOREXIA [None]
  - ANXIETY [None]
  - DRY EYE [None]
  - MEDICATION ERROR [None]
  - PRURITUS [None]
  - RASH ERYTHEMATOUS [None]
